FAERS Safety Report 6427372-0 (Version None)
Quarter: 2009Q4

REPORT INFORMATION
  Report Type: 
  Country: None (occurrence: None)
  Receive Date: 20091104
  Receipt Date: 20091028
  Transmission Date: 20100525
  Serious: Yes (Hospitalization, Other)
  Sender: FDA-Public Use
  Company Number: JP-PFIZER INC-2009291548

PATIENT
  Age: 81 Year
  Sex: Male

DRUGS (4)
  1. HYDROXYZINE PAMOATE [Suspect]
     Route: 048
     Dates: start: 20090416
  2. TANDOSPIRONE CITRATE [Concomitant]
     Route: 048
     Dates: start: 20090416
  3. GLUCOSAMINE [Concomitant]
     Route: 048
     Dates: start: 20090423
  4. CHONDROITIN [Concomitant]
     Route: 048
     Dates: start: 20090423

REACTIONS (2)
  - ACUTE GENERALISED EXANTHEMATOUS PUSTULOSIS [None]
  - PSORIASIS [None]
